FAERS Safety Report 7668283-2 (Version None)
Quarter: 2011Q3

REPORT INFORMATION
  Report Type: 
  Country: None (occurrence: None)
  Receive Date: 20110808
  Receipt Date: 20110802
  Transmission Date: 20111222
  Serious: Yes (Hospitalization, Other)
  Sender: FDA-Public Use
  Company Number: FR-PFIZER INC-2008074374

PATIENT
  Age: 52 Year
  Sex: Female

DRUGS (7)
  1. POSACONAZOLE [Concomitant]
  2. VFEND [Suspect]
     Indication: ASPERGILLOSIS
     Dosage: UNK
     Route: 048
     Dates: start: 20080408, end: 20080415
  3. BACTRIM [Suspect]
     Route: 042
     Dates: start: 20080410, end: 20080414
  4. VALACYCLOVIR HYDROCHLORIDE [Concomitant]
  5. LANSOPRAZOLE [Concomitant]
  6. EVEROLIMUS [Concomitant]
  7. FOSAMAX [Concomitant]

REACTIONS (4)
  - DELIRIUM [None]
  - PSYCHOMOTOR HYPERACTIVITY [None]
  - HALLUCINATION, VISUAL [None]
  - SUICIDE ATTEMPT [None]
